FAERS Safety Report 4681102-1 (Version None)
Quarter: 2005Q2

REPORT INFORMATION
  Report Type: 
  Country: None (occurrence: None)
  Receive Date: 20050601
  Receipt Date: 20050523
  Transmission Date: 20051028
  Serious: Yes (Hospitalization)
  Sender: FDA-Public Use
  Company Number: 2005049603

PATIENT
  Age: 76 Year
  Sex: Male

DRUGS (9)
  1. ZOLOFT [Suspect]
     Indication: DEPRESSION
     Dosage: 100 MG (100 MG, 1 IN 1 D)
  2. ULTRACET [Suspect]
     Indication: PAIN
  3. COREG [Concomitant]
  4. LANOXIN [Concomitant]
  5. FLOMAX ^BOEHRINGER INGELHEIM^ (TAMSULOSIN HYDROCHLORIDE) [Concomitant]
  6. GLIPIZIDE [Concomitant]
  7. VICODIN [Concomitant]
  8. NEPHROCAPS (FOLIC ACID, VITAMINS NOS) [Concomitant]
  9. RENAGEL [Concomitant]

REACTIONS (5)
  - ARRHYTHMIA [None]
  - CONFUSIONAL STATE [None]
  - DELIRIUM [None]
  - DELUSION [None]
  - DRUG INTERACTION [None]
